FAERS Safety Report 5474120-7 (Version None)
Quarter: 2007Q3

REPORT INFORMATION
  Report Type: 
  Country: None (occurrence: None)
  Receive Date: 20070927
  Receipt Date: 20070927
  Transmission Date: 20080115
  Serious: Yes (Hospitalization)
  Sender: FDA-Public Use
  Company Number: None

PATIENT
  Sex: Male
  Weight: 70 kg

DRUGS (13)
  1. TEMOZOLOMIDE [Suspect]
     Indication: GLIOBLASTOMA
     Dosage: PO 140MG (DAY1)
     Route: 048
     Dates: start: 20070703, end: 20070707
  2. O6BG 120MG/M2 (3 BOLUSES), O6BG 30MG/M2 CONT X 5 DAYS [Suspect]
     Indication: GLIOBLASTOMA
     Dosage: IV 220MG BOLUS, 55MG QD
     Route: 040
     Dates: start: 20070703, end: 20070707
  3. EFFEXOR XR [Concomitant]
  4. PEPCID [Concomitant]
  5. DEXAMETHASONE 0.5MG TAB [Concomitant]
  6. POTASSIUM CHLORIDE [Concomitant]
  7. KEPPRA [Concomitant]
  8. TRAZODONE HCL [Concomitant]
  9. PROVIGIL [Concomitant]
  10. BENADRYL [Concomitant]
  11. DOXYCYCLINE [Concomitant]
  12. CENTRUM SILVER [Concomitant]
  13. CALCIUM WITH VITAMIN D [Concomitant]

REACTIONS (2)
  - DEEP VEIN THROMBOSIS [None]
  - DISEASE PROGRESSION [None]
